FAERS Safety Report 7078320 (Version 2)
Quarter: 2012Q4

REPORT INFORMATION
  Report Type: 
  Country: US (occurrence: None)
  Receive Date: 20090803
  Receipt Date: 20120912
  Transmission Date: 20130627
  Serious: Yes (Other)
  Sender: FDA-Public Use
  Company Number: 2009AP003022

PATIENT
  Age: 76 Year
  Sex: Male

DRUGS (7)
  1. AMIODARONE HYDROCHLORIDE [Suspect]
     Dosage: 400 MG; TID; PO
     Route: 048
  2. ACETYLSALICYLIC ACID [Concomitant]
  3. ISOSORBIDE DINITRATE [Concomitant]
  4. HYDRALAZINE HYDROCHLORIDE [Concomitant]
  5. METOPROLOL SUCCINATE [Concomitant]
  6. SIMVASTATIN [Concomitant]
  7. WARFARIN SODIUM [Concomitant]

REACTIONS (17)
  - Neurotoxicity [None]
  - Ataxia [None]
  - Abasia [None]
  - Balance disorder [None]
  - Cerebellar syndrome [None]
  - Feeling drunk [None]
  - Blood pressure systolic increased [None]
  - Romberg test positive [None]
  - Alanine aminotransferase increased [None]
  - Aspartate aminotransferase increased [None]
  - International normalised ratio increased [None]
  - Blood urea increased [None]
  - Blood creatinine increased [None]
  - Prothrombin time prolonged [None]
  - Activated partial thromboplastin time prolonged [None]
  - Sinus bradycardia [None]
  - Atrioventricular block first degree [None]
